FAERS Safety Report 22244745 (Version 1)
Quarter: 2023Q2

REPORT INFORMATION
  Report Type: Report from Study
  Country: US (occurrence: US)
  Receive Date: 20230424
  Receipt Date: 20230424
  Transmission Date: 20230722
  Serious: Yes (Other)
  Sender: FDA-Public Use
  Company Number: US-ABBVIE-4307960

PATIENT
  Sex: Female

DRUGS (2)
  1. RINVOQ [Suspect]
     Active Substance: UPADACITINIB
     Indication: Colitis ulcerative
     Dosage: FORM STRENGTH: 45 MG?DRUG START : 22 JAN 2023?LOADING DOSE: 45MG TABLET?PER ORAL ONCE DAILY INITI...
     Route: 048
     Dates: start: 20230122
  2. RINVOQ [Suspect]
     Active Substance: UPADACITINIB
     Indication: Colitis ulcerative
     Dosage: FORM STRENGTH: 30 MILLIGRAM
     Route: 048
     Dates: start: 20230122

REACTIONS (12)
  - Basal cell carcinoma [Unknown]
  - Constipation [Unknown]
  - Discomfort [Unknown]
  - Osteoarthritis [Unknown]
  - Abdominal distension [Unknown]
  - Decreased appetite [Unknown]
  - Abdominal pain [Unknown]
  - Arthralgia [Unknown]
  - Flatulence [Unknown]
  - Muscle spasms [Unknown]
  - Mucous stools [Unknown]
  - Abdominal pain [Unknown]

NARRATIVE: CASE EVENT DATE: 20230101
